FAERS Safety Report 17245266 (Version 1)
Quarter: 2020Q1

REPORT INFORMATION
  Report Type: Spontaneous
  Country: PL (occurrence: PL)
  Receive Date: 20200108
  Receipt Date: 20200108
  Transmission Date: 20200409
  Serious: Yes (Other)
  Sender: FDA-Public Use
  Company Number: PL-TEVA-2020-PL-1164385

PATIENT
  Age: 70 Year
  Sex: Male
  Weight: 63 kg

DRUGS (3)
  1. EFFENTORA [Suspect]
     Active Substance: FENTANYL CITRATE
     Indication: MALIGNANT PALATE NEOPLASM
     Dosage: 100 MG
     Route: 060
     Dates: start: 20171103, end: 20171103
  2. MATRIFEN [Suspect]
     Active Substance: FENTANYL
     Indication: MALIGNANT PALATE NEOPLASM
     Dosage: 0.012 MICROGRAMS /H
     Route: 062
  3. DEXAVEN [Suspect]
     Active Substance: DEXAMETHASONE
     Indication: MALIGNANT PALATE NEOPLASM
     Route: 030
     Dates: start: 20171030, end: 20171031

REACTIONS (4)
  - Behaviour disorder [Recovered/Resolved]
  - Illogical thinking [Recovered/Resolved]
  - Confusional state [Recovered/Resolved]
  - Aggression [Recovered/Resolved]

NARRATIVE: CASE EVENT DATE: 20171031
